FAERS Safety Report 4743567-6 (Version None)
Quarter: 2005Q3

REPORT INFORMATION
  Report Type: 
  Country: None (occurrence: None)
  Receive Date: 20050809
  Receipt Date: 20050725
  Transmission Date: 20060218
  Serious: Yes (Death)
  Sender: FDA-Public Use
  Company Number: 214361

PATIENT
  Age: 73 Year
  Sex: Female

DRUGS (6)
  1. RITUXAN [Suspect]
     Indication: NON-HODGKIN'S LYMPHOMA
     Dosage: 470 MG, INTRAVENOUS
     Route: 042
     Dates: start: 20031009, end: 20031009
  2. SAXIZON (HYDROCORTISONE SODIUM SUCCINATE) [Concomitant]
  3. CHLOR-TRIMETON (CHLORPHENIRAMINE MALEATE) [Concomitant]
  4. ACEBUTOLOL HYDROCHLORIDE (ACEBUTOLOL) [Concomitant]
  5. FAMOTIDINE [Concomitant]
  6. CYCLOCIDE (CYTARABINE) [Concomitant]

REACTIONS (3)
  - HEPATIC FAILURE [None]
  - MELAENA [None]
  - TREMOR [None]
